FAERS Safety Report 8369631-0 (Version None)
Quarter: 2012Q2

REPORT INFORMATION
  Report Type: 
  Country: None (occurrence: None)
  Receive Date: 20120518
  Receipt Date: 20120515
  Transmission Date: 20120825
  Serious: Yes (Death)
  Sender: FDA-Public Use
  Company Number: PHHY2010BR39436

PATIENT
  Sex: Female
  Weight: 50 kg

DRUGS (5)
  1. HYGROTON [Concomitant]
     Indication: HYPERTENSION
  2. EXELON [Suspect]
     Dosage: EXELON TTS 27MG/15CM2, 1 PATCH DAILY
  3. SERTRALINE HYDROCHLORIDE [Concomitant]
     Indication: DEPRESSION
  4. EXELON [Suspect]
     Indication: DEMENTIA ALZHEIMER'S TYPE
     Dosage: EXELON TTS 18MG/10CM2, 1 PATCH DAILY
     Route: 062
     Dates: start: 20090101
  5. HYDROCHLOROTHIAZIDE [Concomitant]
     Indication: HYPERTENSION

REACTIONS (4)
  - URINARY TRACT INFECTION [None]
  - CONSTIPATION [None]
  - SEPSIS [None]
  - DIARRHOEA [None]
